APPROVED DRUG PRODUCT: BRONKOMETER
Active Ingredient: ISOETHARINE MESYLATE
Strength: 0.34MG/INH
Dosage Form/Route: AEROSOL, METERED;INHALATION
Application: N012339 | Product #007
Applicant: SANOFI AVENTIS US LLC
Approved: Approved Prior to Jan 1, 1982 | RLD: No | RS: No | Type: DISCN